FAERS Safety Report 6520580-X (Version None)
Quarter: 2009Q4

REPORT INFORMATION
  Report Type: 
  Country: None (occurrence: None)
  Receive Date: 20091229
  Receipt Date: 20091218
  Transmission Date: 20100525
  Serious: Yes (Hospitalization)
  Sender: FDA-Public Use
  Company Number: IT-BRISTOL-MYERS SQUIBB COMPANY-14891964

PATIENT
  Age: 88 Year
  Sex: Female

DRUGS (6)
  1. GLUCOPHAGE [Suspect]
     Indication: TYPE 2 DIABETES MELLITUS
     Dosage: STRENGTH=500MG
     Route: 048
  2. SOLOSA [Suspect]
     Indication: TYPE 2 DIABETES MELLITUS
     Dosage: STRENGTH:2MG
     Route: 048
     Dates: start: 20091026, end: 20091029
  3. ENAPREN [Suspect]
     Indication: CARDIAC FAILURE
     Dosage: STRENGTH:5MG
     Route: 048
  4. DELTACORTENE [Concomitant]
     Dosage: STRENGTH:5MG
     Route: 048
  5. THEOPHYLLINE [Concomitant]
     Route: 048
  6. PARIET [Concomitant]
     Dosage: STRENGTH:20MG
     Route: 048

REACTIONS (3)
  - BLOOD PH INCREASED [None]
  - BLOOD PRESSURE INCREASED [None]
  - HYPOGLYCAEMIC COMA [None]
